FAERS Safety Report 7496365-7 (Version None)
Quarter: 2011Q2

REPORT INFORMATION
  Report Type: 
  Country: None (occurrence: None)
  Receive Date: 20110523
  Receipt Date: 20110516
  Transmission Date: 20111010
  Serious: Yes (Hospitalization, Other)
  Sender: FDA-Public Use
  Company Number: US-SANOFI-AVENTIS-2010SA029600

PATIENT
  Age: 76 Year
  Sex: Male
  Weight: 105 kg

DRUGS (14)
  1. COREG [Concomitant]
  2. XELODA [Suspect]
     Route: 048
     Dates: start: 20100401, end: 20100406
  3. IBUPROFEN [Concomitant]
  4. ASPIRIN [Concomitant]
  5. MULTI-VITAMINS [Concomitant]
  6. AMLODIPINE BESYLATE [Concomitant]
  7. ANTINEOPLASTIC AGENTS [Concomitant]
     Indication: COLON CANCER
     Dosage: EVERY 20 DAY
     Route: 042
  8. COMPAZINE [Concomitant]
  9. PROPOXYPHENE HYDROCHLORIDE [Concomitant]
  10. ELOXATIN [Suspect]
     Dosage: EVERY 21 DAYS
     Route: 041
     Dates: start: 20100401, end: 20100401
  11. ISOSORBIDE MONONITRATE [Concomitant]
  12. ELOXATIN [Suspect]
     Dosage: EVERY 21 DAYS
     Route: 041
     Dates: start: 20100426, end: 20100426
  13. COREG [Concomitant]
  14. ANTINEOPLASTIC AGENTS [Concomitant]
     Route: 048

REACTIONS (9)
  - FATIGUE [None]
  - ANAEMIA [None]
  - HYPERHIDROSIS [None]
  - CHEST PAIN [None]
  - INSOMNIA [None]
  - DYSPNOEA [None]
  - ANGINA PECTORIS [None]
  - ARTERIOSPASM CORONARY [None]
  - NAUSEA [None]
